FAERS Safety Report 4378011-4 (Version None)
Quarter: 2004Q2

REPORT INFORMATION
  Report Type: 
  Country: None (occurrence: None)
  Receive Date: 20040615
  Receipt Date: 20040615
  Transmission Date: 20050107
  Serious: Yes (Death)
  Sender: FDA-Public Use
  Company Number: None

PATIENT
  Sex: Male
  Weight: 74 kg

DRUGS (3)
  1. CAMPATH [Suspect]
     Indication: ACUTE LYMPHOCYTIC LEUKAEMIA
     Dosage: 20 MG QD IV
     Route: 042
     Dates: start: 20040309, end: 20040313
  2. MELPHALAN [Suspect]
     Indication: ACUTE LYMPHOCYTIC LEUKAEMIA
     Dosage: 308 MG X 1 IV
     Route: 042
     Dates: start: 20040314, end: 20040314
  3. FLUDARABINE PHOSPHATE [Concomitant]

REACTIONS (2)
  - LIVER DISORDER [None]
  - NEUROLOGICAL SYMPTOM [None]
